FAERS Safety Report 4954045-3 (Version None)
Quarter: 2006Q1

REPORT INFORMATION
  Report Type: 
  Country: None (occurrence: None)
  Receive Date: 20060322
  Receipt Date: 20060306
  Transmission Date: 20060701
  Serious: Yes (Hospitalization, Other)
  Sender: FDA-Public Use
  Company Number: IT-2006-005707

PATIENT
  Age: 58 Year
  Sex: Female

DRUGS (1)
  1. FLUDARA [Suspect]
     Indication: CHRONIC LYMPHOCYTIC LEUKAEMIA
     Dosage: 40 MG/M2, CYCLEX5D, EVERY 4 WEEK, ORAL
     Route: 048

REACTIONS (3)
  - CHRONIC LYMPHOCYTIC LEUKAEMIA TRANSFORMATION [None]
  - LYMPHOPLASMACYTOID LYMPHOMA/IMMUNOCYTOMA [None]
  - PRURITUS [None]
